FAERS Safety Report 8677302 (Version 2)
Quarter: 2012Q4

REPORT INFORMATION
  Report Type: 
  Country: DE (occurrence: DE)
  Receive Date: 20120723
  Receipt Date: 20121221
  Transmission Date: 20130627
  Serious: Yes (Life-Threatening, Hospitalization)
  Sender: FDA-Public Use
  Company Number: DE-NOVOPROD-355932

PATIENT
  Age: 46 Year
  Sex: Male
  Weight: 90 kg

DRUGS (5)
  1. VICTOZA [Suspect]
     Indication: TYPE 2 DIABETES MELLITUS
     Dosage: 1.8 mg, qd
     Route: 058
     Dates: end: 20120105
  2. VICTOZA [Suspect]
     Dosage: UNK
     Route: 058
     Dates: start: 20120107
  3. METFORMIN [Concomitant]
     Indication: TYPE 2 DIABETES MELLITUS
     Dosage: 1 g, bid
     Route: 048
  4. OXIS TURBOHALER [Concomitant]
     Indication: CHRONIC OBSTRUCTIVE PULMONARY DISEASE
     Dosage: 12 ?g, bid
     Route: 055
  5. SPIRIVA [Concomitant]
     Indication: CHRONIC OBSTRUCTIVE PULMONARY DISEASE
     Dosage: 18 ?g, qd
     Route: 055

REACTIONS (2)
  - Methaemoglobinaemia [Recovered/Resolved]
  - Blood glucose increased [Unknown]
